FAERS Safety Report 11361821 (Version 2)
Quarter: 2015Q3

REPORT INFORMATION
  Report Type: Report from Study
  Country: CA (occurrence: CA)
  Receive Date: 20150810
  Receipt Date: 20150814
  Transmission Date: 20151125
  Serious: Yes (Life-Threatening, Hospitalization, Other)
  Sender: FDA-Public Use
  Company Number: PHHY2015CA045017

PATIENT
  Age: 34 Year
  Sex: Female

DRUGS (6)
  1. CIPRALEX [Concomitant]
     Active Substance: ESCITALOPRAM OXALATE
     Indication: PRODUCT USED FOR UNKNOWN INDICATION
     Dosage: UNK
     Route: 065
  2. VITAMIN B COMPLEX [Concomitant]
     Active Substance: CYANOCOBALAMIN\DEXPANTHENOL\NIACINAMIDE\PYRIDOXINE HYDROCHLORIDE\RIBOFLAVIN 5^-PHOSPHATE SODIUM\THIAMINE HYDROCHLORIDE\VITAMIN B COMPLEX
     Indication: PRODUCT USED FOR UNKNOWN INDICATION
     Dosage: UNK
     Route: 065
  3. GILENYA [Suspect]
     Active Substance: FINGOLIMOD HYDROCHLORIDE
     Indication: RELAPSING-REMITTING MULTIPLE SCLEROSIS
     Dosage: 0.5 MG, QD
     Route: 048
     Dates: start: 20150211, end: 20150415
  4. VITAMIN B [Concomitant]
     Active Substance: VITAMIN B
     Indication: PRODUCT USED FOR UNKNOWN INDICATION
     Dosage: 4000 IU, QD
     Route: 065
  5. OMEGA 3 [Concomitant]
     Active Substance: OMEGA-3 FATTY ACIDS
     Indication: PRODUCT USED FOR UNKNOWN INDICATION
     Dosage: UNK
     Route: 065
  6. MYRBETRIQ [Concomitant]
     Active Substance: MIRABEGRON
     Indication: PRODUCT USED FOR UNKNOWN INDICATION
     Dosage: UNK
     Route: 065

REACTIONS (30)
  - Confusional state [Unknown]
  - Visual acuity reduced [Recovering/Resolving]
  - Weight decreased [Unknown]
  - Reflexes abnormal [Unknown]
  - Hyperphagia [Unknown]
  - Visual impairment [Recovering/Resolving]
  - Hypoaesthesia [Unknown]
  - Optic atrophy [Unknown]
  - Vision blurred [Unknown]
  - Hyperreflexia [Unknown]
  - Diabetic coma [Unknown]
  - Extensor plantar response [Unknown]
  - Headache [Unknown]
  - Multiple sclerosis relapse [Unknown]
  - Polyuria [Unknown]
  - Dry mouth [Unknown]
  - Lymphocyte count decreased [Unknown]
  - Fatigue [Recovering/Resolving]
  - Polydipsia [Unknown]
  - Infection [Unknown]
  - Pollakiuria [Not Recovered/Not Resolved]
  - Micturition urgency [Not Recovered/Not Resolved]
  - Motor neurone disease [Unknown]
  - Diabetic ketoacidosis [Recovering/Resolving]
  - CSF glucose increased [Unknown]
  - Central nervous system lesion [Unknown]
  - Type 1 diabetes mellitus [Recovering/Resolving]
  - Hyperglycaemia [Unknown]
  - Incontinence [Unknown]
  - Decreased vibratory sense [Unknown]

NARRATIVE: CASE EVENT DATE: 201504
